FAERS Safety Report 6046217-4 (Version None)
Quarter: 2009Q1

REPORT INFORMATION
  Report Type: 
  Country: None (occurrence: None)
  Receive Date: 20090122
  Receipt Date: 20090112
  Transmission Date: 20090719
  Serious: Yes (Hospitalization)
  Sender: FDA-Public Use
  Company Number: DE-PFIZER INC-2009153859

PATIENT

DRUGS (8)
  1. NORVASC [Interacting]
     Indication: HYPERTENSION
     Dosage: 5 MG, 1X/DAY
     Route: 048
  2. DIGITOXIN [Suspect]
     Indication: CARDIAC FAILURE
     Dosage: 0.07 MG, 1X/DAY
  3. INDAPAMIDE [Suspect]
     Indication: HYPERTENSION
     Dosage: 1.5 MG, 1X/DAY
     Route: 048
  4. ENALAPRIL [Interacting]
     Indication: HYPERTENSION
     Dosage: 2.5 MG, 1X/DAY
  5. MOXONIDINE [Interacting]
     Indication: HYPERTENSION
     Dosage: 0.4 MG, 1X/DAY
     Route: 048
  6. SORTIS ^GOEDECKE^ [Concomitant]
     Indication: HYPERCHOLESTEROLAEMIA
     Dosage: 40 MG, 1X/DAY
     Route: 048
     Dates: start: 20080601
  7. ACTRAPHANE HM [Concomitant]
     Indication: TYPE 2 DIABETES MELLITUS
     Dosage: 20 IU, 2X/DAY
     Route: 058
  8. FALITHROM ^HEXAL^ [Concomitant]
     Indication: ARRHYTHMIA PROPHYLAXIS
     Dosage: 3 MG, ALTERNATE DAY
     Route: 048

REACTIONS (3)
  - BRADYCARDIA [None]
  - DRUG INTERACTION [None]
  - VOMITING [None]
